FAERS Safety Report 7295469-1 (Version None)
Quarter: 2011Q1

REPORT INFORMATION
  Report Type: 
  Country: None (occurrence: None)
  Receive Date: 20110216
  Receipt Date: 20110119
  Transmission Date: 20110831
  Serious: No
  Sender: FDA-Public Use
  Company Number: US-ABBOTT-11P-163-0699083-00

PATIENT
  Sex: Male
  Weight: 108.96 kg

DRUGS (2)
  1. GLUCOVANCE [Concomitant]
     Indication: PRODUCT USED FOR UNKNOWN INDICATION
     Route: 048
  2. SIMCOR [Suspect]
     Indication: DYSLIPIDAEMIA

REACTIONS (2)
  - FLUSHING [None]
  - FEELING HOT [None]
